FAERS Safety Report 5941309-X (Version None)
Quarter: 2008Q4

REPORT INFORMATION
  Report Type: 
  Country: None (occurrence: None)
  Receive Date: 20081103
  Receipt Date: 20081103
  Transmission Date: 20090506
  Serious: No
  Sender: FDA-Public Use
  Company Number: None

PATIENT
  Age: 64 Year
  Sex: Female
  Weight: 81.6475 kg

DRUGS (1)
  1. AMBIEN CR [Suspect]
     Indication: SLEEP DISORDER
     Dosage: 25 MG 1 TIME PER DAY PO
     Route: 048
     Dates: start: 20080502, end: 20080719

REACTIONS (3)
  - HEADACHE [None]
  - MALAISE [None]
  - ORAL PAIN [None]
